FAERS Safety Report 7725709-3 (Version None)
Quarter: 2011Q3

REPORT INFORMATION
  Report Type: 
  Country: None (occurrence: None)
  Receive Date: 20110830
  Receipt Date: 20110816
  Transmission Date: 20111222
  Serious: Yes (Other)
  Sender: FDA-Public Use
  Company Number: 2009S1001082

PATIENT
  Age: 50 Year
  Sex: Male
  Weight: 77.1115 kg

DRUGS (7)
  1. SODIUM PHOSPHATE MONOBASIC MONOHYDRATE AND NAPO4 DIBASIC ANHYDROUS [Suspect]
     Indication: COLONOSCOPY
     Dosage: 90 ML;TOTAL;PO
     Route: 048
     Dates: start: 20040929, end: 20040929
  2. NOVOLIN N [Concomitant]
  3. LIPITOR [Concomitant]
  4. VIAGRA [Concomitant]
  5. BENICAR [Concomitant]
  6. NOVOLIN R [Concomitant]
  7. CARDIZEM [Concomitant]

REACTIONS (4)
  - DEHYDRATION [None]
  - BLOOD PARATHYROID HORMONE DECREASED [None]
  - RENAL FAILURE CHRONIC [None]
  - ELECTROLYTE IMBALANCE [None]
